FAERS Safety Report 13815392 (Version 13)
Quarter: 2021Q4

REPORT INFORMATION
  Report Type: Spontaneous
  Country: US (occurrence: US)
  Receive Date: 20170731
  Receipt Date: 20211029
  Transmission Date: 20220304
  Serious: Yes (Life-Threatening, Hospitalization, Other)
  Sender: FDA-Public Use
  Company Number: US-MERCK KGAA-7027539

PATIENT
  Age: 54 Year
  Sex: Female
  Weight: 86 kg

DRUGS (17)
  1. REBIF [Suspect]
     Active Substance: INTERFERON BETA-1A
     Indication: Multiple sclerosis
     Dosage: PREFILLED SYRINGE?REBIF EXPIRY DATE- /FEB/2022
     Route: 058
     Dates: start: 20060705, end: 20101110
  2. REBIF [Suspect]
     Active Substance: INTERFERON BETA-1A
     Route: 058
     Dates: start: 20101122
  3. REBIF [Suspect]
     Active Substance: INTERFERON BETA-1A
     Route: 058
  4. PREDNISONE [Suspect]
     Active Substance: PREDNISONE
     Indication: Premedication
     Dosage: SHE WAS RECENTLY ON A PREDNISONE TAPER FOR BURSITIS IN HER LEFT SHOULDER.
  5. PREDNISONE [Suspect]
     Active Substance: PREDNISONE
     Indication: Bursitis
  6. PREDNISONE [Suspect]
     Active Substance: PREDNISONE
     Indication: Multiple sclerosis relapse
  7. IBUPROFEN [Concomitant]
     Active Substance: IBUPROFEN
     Indication: Premedication
  8. LEXAPRO [Concomitant]
     Active Substance: ESCITALOPRAM OXALATE
     Indication: Anxiety
     Dates: start: 2006
  9. LEXAPRO [Concomitant]
     Active Substance: ESCITALOPRAM OXALATE
     Indication: Depression
  10. VITAMIN D2 + CALCIUM [CALCIUM GLUCONATE;CALCIUM PHOSPHATE;ERGOCALCIFER [Concomitant]
     Indication: Arthralgia
     Dates: start: 2008
  11. KLONOPIN [Concomitant]
     Active Substance: CLONAZEPAM
     Indication: Anxiety
     Dates: start: 2006
  12. KLONOPIN [Concomitant]
     Active Substance: CLONAZEPAM
     Indication: Depression
  13. KLONOPIN [Concomitant]
     Active Substance: CLONAZEPAM
     Indication: Stress
  14. ATENOLOL [Concomitant]
     Active Substance: ATENOLOL
     Indication: Palpitations
  15. ATENOLOL [Concomitant]
     Active Substance: ATENOLOL
     Indication: Heart rate irregular
  16. NAPROXEN [Concomitant]
     Active Substance: NAPROXEN
     Indication: Migraine
  17. VISTARIL (HYDROXYZINE HYDROCHLORIDE) [Concomitant]
     Active Substance: HYDROXYZINE HYDROCHLORIDE
     Indication: Product used for unknown indication

REACTIONS (61)
  - Appendicitis perforated [Recovered/Resolved]
  - Hypothyroidism [Not Recovered/Not Resolved]
  - Haematochezia [Unknown]
  - Postoperative wound infection [Recovered/Resolved]
  - Peritonitis [Recovered/Resolved]
  - Abdominal hernia [Recovering/Resolving]
  - Incisional hernia [Unknown]
  - Influenza like illness [Recovering/Resolving]
  - Fatigue [Unknown]
  - Injection site discolouration [Unknown]
  - Injection site swelling [Unknown]
  - Injection site erythema [Not Recovered/Not Resolved]
  - Injection site pain [Not Recovered/Not Resolved]
  - Injection site pruritus [Not Recovered/Not Resolved]
  - Depression [Unknown]
  - Injection site scar [Unknown]
  - Headache [Unknown]
  - Pain [Not Recovered/Not Resolved]
  - Viral infection [Recovered/Resolved]
  - Anorectal discomfort [Not Recovered/Not Resolved]
  - Fall [Unknown]
  - Diarrhoea [Recovered/Resolved]
  - Weight decreased [Unknown]
  - Sciatica [Not Recovered/Not Resolved]
  - Oedema peripheral [Not Recovered/Not Resolved]
  - Joint swelling [Not Recovered/Not Resolved]
  - Retching [Not Recovered/Not Resolved]
  - High density lipoprotein decreased [Not Recovered/Not Resolved]
  - Blood cholesterol increased [Unknown]
  - Blood triglycerides increased [Unknown]
  - Vitamin B12 decreased [Unknown]
  - Vitamin B12 increased [Recovered/Resolved]
  - Vitamin D decreased [Unknown]
  - Yellow skin [Recovered/Resolved]
  - Procedural pain [Not Recovered/Not Resolved]
  - Malaise [Unknown]
  - Gambling disorder [Recovered/Resolved]
  - Urinary tract infection [Recovered/Resolved]
  - Back injury [Not Recovered/Not Resolved]
  - Dermatitis allergic [Unknown]
  - Scar [Recovered/Resolved]
  - Bursitis [Recovered/Resolved]
  - Muscular weakness [Unknown]
  - Feeling hot [Unknown]
  - Band sensation [Unknown]
  - Stress [Unknown]
  - Social avoidant behaviour [Unknown]
  - Post procedural complication [Unknown]
  - Groin pain [Unknown]
  - Low density lipoprotein increased [Unknown]
  - Upper respiratory tract infection [Recovering/Resolving]
  - Decreased appetite [Unknown]
  - Cough [Unknown]
  - Feeling abnormal [Unknown]
  - Anger [Recovering/Resolving]
  - Illness [Unknown]
  - Hyperhidrosis [Unknown]
  - Device malfunction [Unknown]
  - Incorrect product administration duration [Unknown]
  - Wrong technique in device usage process [Unknown]
  - Product dose omission issue [Unknown]

NARRATIVE: CASE EVENT DATE: 20100101
